FAERS Safety Report 9139456 (Version 1)
Quarter: 2013Q1

REPORT INFORMATION
  Report Type: Spontaneous
  Country: US (occurrence: US)
  Receive Date: 20130305
  Receipt Date: 20130305
  Transmission Date: 20140127
  Serious: Yes (Other)
  Sender: FDA-Public Use
  Company Number: US-JNJFOC-20130300461

PATIENT
  Age: 64 Year
  Sex: Female

DRUGS (5)
  1. PROGRAF [Suspect]
     Indication: LUNG TRANSPLANT
     Route: 048
     Dates: start: 20120206
  2. TRAMADOL [Suspect]
     Indication: SLEEP DISORDER
     Route: 065
  3. REQUIP [Suspect]
     Indication: SLEEP DISORDER
     Route: 065
  4. KLONOPIN [Suspect]
     Indication: SLEEP DISORDER
     Route: 065
  5. GABAPENTIN [Suspect]
     Indication: SLEEP DISORDER
     Dosage: AT NIGHT
     Route: 065

REACTIONS (2)
  - Fatigue [Unknown]
  - Off label use [Unknown]
